FAERS Safety Report 8091409-6 (Version None)
Quarter: 2012Q1

REPORT INFORMATION
  Report Type: 
  Country: None (occurrence: None)
  Receive Date: 20120129
  Receipt Date: 20111123
  Transmission Date: 20120608
  Serious: No
  Sender: FDA-Public Use
  Company Number: US-ABBOTT-10P-163-0666946-00

PATIENT
  Sex: Female
  Weight: 120.31 kg

DRUGS (19)
  1. CAFFEINE CITRATE [Concomitant]
     Indication: PRODUCT USED FOR UNKNOWN INDICATION
     Dosage: SODA
     Route: 048
     Dates: start: 20091014, end: 20100122
  2. CAFFEINE CITRATE [Concomitant]
     Dosage: SODA
     Route: 048
     Dates: start: 20100123, end: 20100303
  3. MILK OF MAGNESIA TAB [Concomitant]
     Route: 048
     Dates: start: 20100501, end: 20100714
  4. MULTI-VITAMINS [Concomitant]
     Indication: PREGNANCY
     Route: 048
     Dates: start: 20091201, end: 20100714
  5. GINGER [Concomitant]
     Indication: NAUSEA
     Route: 048
     Dates: start: 20100101, end: 20100123
  6. TEA [Concomitant]
     Route: 048
     Dates: start: 20100123, end: 20100303
  7. HUMIRA [Suspect]
     Dates: start: 20100621, end: 20100621
  8. ANTIVERT [Concomitant]
     Indication: NAUSEA
     Dates: start: 20091216, end: 20091219
  9. HUMIRA [Suspect]
     Indication: PSORIASIS
     Dates: start: 20091213, end: 20100601
  10. CONDOMS PLUS SPERMACIDE UNKNOWN [Concomitant]
     Indication: PRODUCT USED FOR UNKNOWN INDICATION
     Dates: start: 20091014, end: 20091125
  11. CAFFEINE CITRATE [Concomitant]
     Dosage: COKE1 IN 1.5 MONTH
     Route: 048
     Dates: start: 20100303, end: 20100714
  12. DARVOCET [Concomitant]
     Indication: ARTHRALGIA
     Route: 048
     Dates: start: 20091014, end: 20100122
  13. IBUPROFEN [Concomitant]
     Indication: PAIN
     Route: 048
     Dates: start: 20091014, end: 20100303
  14. TEA [Concomitant]
     Indication: PRODUCT USED FOR UNKNOWN INDICATION
     Route: 048
     Dates: start: 20091014, end: 20100122
  15. ACETAMINOPHEN [Concomitant]
     Indication: PAIN
     Route: 048
     Dates: start: 20091014, end: 20100303
  16. CALCIUM CARBONATE [Concomitant]
     Indication: DYSPEPSIA
     Dosage: 2.5 PILL 1 MONTH
     Route: 048
     Dates: start: 20100303, end: 20100601
  17. HUMIRA [Suspect]
     Indication: PSORIATIC ARTHROPATHY
     Dates: start: 20091014, end: 20091101
  18. TEA, GREEN [Concomitant]
     Indication: PRODUCT USED FOR UNKNOWN INDICATION
     Route: 048
     Dates: start: 20100303, end: 20100714
  19. ANTIVERT [Concomitant]
     Route: 048
     Dates: start: 20091222, end: 20100119

REACTIONS (8)
  - DYSPEPSIA [None]
  - SKIN INFECTION [None]
  - GLUCOSE TOLERANCE IMPAIRED [None]
  - PSORIATIC ARTHROPATHY [None]
  - PAIN [None]
  - PLACENTAL DISORDER [None]
  - TEMPOROMANDIBULAR JOINT SYNDROME [None]
  - NAUSEA [None]
